FAERS Safety Report 6166986-2 (Version None)
Quarter: 2009Q2

REPORT INFORMATION
  Report Type: 
  Country: None (occurrence: None)
  Receive Date: 20090424
  Receipt Date: 20090415
  Transmission Date: 20091009
  Serious: Yes (Hospitalization)
  Sender: FDA-Public Use
  Company Number: CH-ASTRAZENECA-2009PK01088

PATIENT
  Age: 76 Year
  Sex: Female

DRUGS (6)
  1. NEXIUM [Suspect]
     Route: 048
     Dates: start: 20070101
  2. PLAVIX [Interacting]
     Indication: ISCHAEMIC CARDIOMYOPATHY
     Route: 048
     Dates: start: 20090202
  3. ASPIRIN [Concomitant]
     Route: 048
  4. FOLVITE [Concomitant]
     Route: 048
     Dates: start: 20070101
  5. EUTHYROX [Concomitant]
     Route: 048
  6. PREDNISOLONE [Concomitant]
     Route: 048
     Dates: start: 20070101

REACTIONS (3)
  - DRUG INEFFECTIVE [None]
  - DRUG INTERACTION [None]
  - ISCHAEMIC CARDIOMYOPATHY [None]
